FAERS Safety Report 8343465-5 (Version None)
Quarter: 2012Q2

REPORT INFORMATION
  Report Type: 
  Country: None (occurrence: None)
  Receive Date: 20120508
  Receipt Date: 20100429
  Transmission Date: 20120825
  Serious: No
  Sender: FDA-Public Use
  Company Number: US-TEVA-2010002663

PATIENT
  Sex: Male

DRUGS (2)
  1. RITUXAN [Concomitant]
     Dates: start: 20090101
  2. TREANDA [Suspect]
     Indication: CHRONIC LYMPHOCYTIC LEUKAEMIA
     Route: 042
     Dates: start: 20090101

REACTIONS (2)
  - CHEST DISCOMFORT [None]
  - FATIGUE [None]
